FAERS Safety Report 15849623 (Version 2)
Quarter: 2019Q1

REPORT INFORMATION
  Report Type: Spontaneous
  Country: DE (occurrence: DE)
  Receive Date: 20190121
  Receipt Date: 20190218
  Transmission Date: 20190417
  Serious: Yes (Hospitalization, Other)
  Sender: FDA-Public Use
  Company Number: PHHY2019DE009513

PATIENT

DRUGS (6)
  1. LAMOTRIGINE. [Suspect]
     Active Substance: LAMOTRIGINE
     Indication: EPILEPSY
     Dosage: UNK
     Route: 065
  2. PETNIDAN [Suspect]
     Active Substance: ETHOSUXIMIDE
     Indication: EPILEPSY
     Dosage: UNK
     Route: 048
  3. PETNIDAN [Suspect]
     Active Substance: ETHOSUXIMIDE
     Dosage: 500 MG, 750 MG
     Route: 048
     Dates: start: 201807
  4. PETNIDAN [Suspect]
     Active Substance: ETHOSUXIMIDE
     Dosage: REDUCED BY 250 MG IN THE EVENING
     Route: 065
  5. ORFIRIL [Suspect]
     Active Substance: VALPROATE SODIUM
     Indication: EPILEPSY
     Dosage: UNK
     Route: 065
  6. OSPOLOT [Suspect]
     Active Substance: SULTHIAME
     Indication: EPILEPSY
     Dosage: UNK
     Route: 065
     Dates: start: 201712, end: 201801

REACTIONS (7)
  - Drug ineffective [Recovered/Resolved]
  - Dyspnoea [Unknown]
  - Inappropriate schedule of product administration [Recovered/Resolved]
  - Seizure [Recovered/Resolved]
  - Abdominal pain [Unknown]
  - Dizziness [Unknown]
  - Epilepsy [Recovered/Resolved]

NARRATIVE: CASE EVENT DATE: 201710
